FAERS Safety Report 25662931 (Version 1)
Quarter: 2025Q3

REPORT INFORMATION
  Report Type: Spontaneous
  Country: US (occurrence: US)
  Receive Date: 20250811
  Receipt Date: 20250811
  Transmission Date: 20251020
  Serious: No
  Sender: NOVARTIS
  Company Number: US-002147023-NVSC2025US124797

PATIENT

DRUGS (2)
  1. COSENTYX [Suspect]
     Active Substance: SECUKINUMAB
     Indication: Product used for unknown indication
     Dosage: UNK UNK, Q4W, (MAINT)
     Route: 042
  2. OTEZLA [Concomitant]
     Active Substance: APREMILAST
     Indication: Product used for unknown indication
     Route: 065

REACTIONS (1)
  - Condition aggravated [Unknown]
